FAERS Safety Report 6426937-X (Version None)
Quarter: 2009Q4

REPORT INFORMATION
  Report Type: 
  Country: None (occurrence: None)
  Receive Date: 20091104
  Receipt Date: 20091101
  Transmission Date: 20100525
  Serious: Yes (Other)
  Sender: FDA-Public Use
  Company Number: JP-GENENTECH-293294

PATIENT
  Age: 57 Year
  Sex: Male

DRUGS (1)
  1. GRTPA [Suspect]
     Indication: CEREBRAL INFARCTION
     Dosage: UNK
     Route: 042
     Dates: start: 20090423, end: 20090423

REACTIONS (1)
  - ARTERIAL THROMBOSIS LIMB [None]
